FAERS Safety Report 10412790 (Version 1)
Quarter: 2014Q3

REPORT INFORMATION
  Report Type: Spontaneous
  Country: US (occurrence: US)
  Receive Date: 20140827
  Receipt Date: 20140827
  Transmission Date: 20150326
  Serious: Yes (Death, Hospitalization)
  Sender: FDA-Public Use
  Company Number: US-JNJFOC-20140823454

PATIENT
  Sex: Female
  Weight: 113.4 kg

DRUGS (2)
  1. XARELTO [Suspect]
     Active Substance: RIVAROXABAN
     Indication: CEREBROVASCULAR ACCIDENT PROPHYLAXIS
     Route: 048
     Dates: start: 2011, end: 20131028
  2. XARELTO [Suspect]
     Active Substance: RIVAROXABAN
     Indication: ATRIAL FIBRILLATION
     Route: 048
     Dates: start: 2011, end: 20131028

REACTIONS (4)
  - Pain [Not Recovered/Not Resolved]
  - Sepsis [Fatal]
  - Malaise [Not Recovered/Not Resolved]
  - Wound [Not Recovered/Not Resolved]

NARRATIVE: CASE EVENT DATE: 2013
